FAERS Safety Report 6275142-9 (Version None)
Quarter: 2009Q3

REPORT INFORMATION
  Report Type: 
  Country: None (occurrence: None)
  Receive Date: 20090721
  Receipt Date: 20090714
  Transmission Date: 20100115
  Serious: Yes (Death)
  Sender: FDA-Public Use
  Company Number: DE-JNJFOC-20090704647

PATIENT

DRUGS (3)
  1. ABCIXIMAB [Suspect]
     Route: 042
  2. ABCIXIMAB [Suspect]
     Indication: BASILAR ARTERY OCCLUSION
     Route: 042
  3. ACTIVASE [Suspect]
     Indication: BASILAR ARTERY OCCLUSION
     Dosage: UP TO A MAXIMUM OF THE STANDARD IV DOSE OF 0.9 MG/KG
     Route: 013

REACTIONS (1)
  - HAEMORRHAGE [None]
